FAERS Safety Report 7777112-8 (Version None)
Quarter: 2011Q3

REPORT INFORMATION
  Report Type: 
  Country: None (occurrence: None)
  Receive Date: 20110926
  Receipt Date: 20110922
  Transmission Date: 20111222
  Serious: Yes (Other)
  Sender: FDA-Public Use
  Company Number: US-BRISTOL-MYERS SQUIBB COMPANY-16086118

PATIENT
  Age: 38 Year
  Sex: Female

DRUGS (3)
  1. ABILIFY [Suspect]
     Indication: MAJOR DEPRESSION
     Dosage: STARTED WITH 2MG FOR ONE WEEK
  2. CELEXA [Suspect]
  3. ABILIFY [Suspect]
     Indication: POST-TRAUMATIC STRESS DISORDER
     Dosage: STARTED WITH 2MG FOR ONE WEEK

REACTIONS (3)
  - RESTLESS LEGS SYNDROME [None]
  - DEHYDRATION [None]
  - LOSS OF CONSCIOUSNESS [None]
